FAERS Safety Report 7497191-5 (Version None)
Quarter: 2011Q2

REPORT INFORMATION
  Report Type: 
  Country: None (occurrence: None)
  Receive Date: 20110523
  Receipt Date: 20110517
  Transmission Date: 20111010
  Serious: Yes (Death, Hospitalization, Other)
  Sender: FDA-Public Use
  Company Number: JP-ABBOTT-11P-087-0702413-00

PATIENT
  Sex: Female
  Weight: 40 kg

DRUGS (11)
  1. HUMIRA [Suspect]
     Indication: RHEUMATOID ARTHRITIS
     Route: 058
     Dates: start: 20100826, end: 20101217
  2. MAGNESIUM OXIDE [Concomitant]
     Indication: PRODUCT USED FOR UNKNOWN INDICATION
     Route: 048
     Dates: start: 20101203
  3. SULFASALAZINE [Concomitant]
     Indication: RHEUMATOID ARTHRITIS
  4. MELOXICAM [Concomitant]
     Indication: RHEUMATOID ARTHRITIS
     Route: 048
     Dates: start: 20100803, end: 20101223
  5. METHOTREXATE [Suspect]
     Indication: RHEUMATOID ARTHRITIS
     Dosage: 6MG/WK
     Route: 048
     Dates: start: 20100517, end: 20101221
  6. SULFAMETHOXAZOLE AND TRIMETHOPRIM [Suspect]
     Route: 048
     Dates: start: 20110105, end: 20110216
  7. LANSOPRAZOLE [Concomitant]
     Indication: RHEUMATOID ARTHRITIS
     Dosage: 30MG DAILY
     Route: 048
     Dates: start: 20100803, end: 20101223
  8. LOXOPROFEN SODIUM HYDRATE [Concomitant]
     Indication: PRODUCT USED FOR UNKNOWN INDICATION
     Route: 061
     Dates: start: 20101203
  9. LEVOFLOXACIN HYDRATE [Suspect]
     Indication: INTERSTITIAL LUNG DISEASE
     Dates: end: 20110128
  10. PREDNISOLONE [Concomitant]
     Indication: RHEUMATOID ARTHRITIS
     Dosage: 3MG DAILY
     Route: 048
     Dates: start: 20100803, end: 20101223
  11. SENNOSIDE [Concomitant]
     Indication: PRODUCT USED FOR UNKNOWN INDICATION
     Route: 048
     Dates: start: 20101203

REACTIONS (13)
  - STREPTOCOCCUS TEST POSITIVE [None]
  - PLEURAL EFFUSION [None]
  - SUPRAVENTRICULAR TACHYCARDIA [None]
  - PLATELET COUNT DECREASED [None]
  - SUPRAVENTRICULAR EXTRASYSTOLES [None]
  - CARDIAC FAILURE [None]
  - INTERSTITIAL LUNG DISEASE [None]
  - MALNUTRITION [None]
  - PERICARDIAL EFFUSION [None]
  - HEPATIC FUNCTION ABNORMAL [None]
  - PSYCHOTIC DISORDER [None]
  - DEMENTIA [None]
  - HYPOPHAGIA [None]
